FAERS Safety Report 23182908 (Version 1)
Quarter: 2023Q4

REPORT INFORMATION
  Report Type: Spontaneous
  Country: US (occurrence: None)
  Receive Date: 20231114
  Receipt Date: 20231114
  Transmission Date: 20240110
  Serious: Yes (Death)
  Sender: FDA-Public Use
  Company Number: None

PATIENT
  Age: 75 Year
  Sex: Male
  Weight: 109.8 kg

DRUGS (19)
  1. REVLIMID [Suspect]
     Active Substance: LENALIDOMIDE
     Indication: Plasma cell myeloma
     Dosage: FREQUENCY : DAILY;?
     Route: 048
     Dates: start: 20221212, end: 20231109
  2. DEXAMETHASONE [Concomitant]
     Active Substance: DEXAMETHASONE
  3. alprazolam 0.5 mg tablet [Concomitant]
  4. SINGULAIR [Concomitant]
     Active Substance: MONTELUKAST SODIUM
  5. gabapentin 800 mg tablet [Concomitant]
  6. Men^s Daily Formula 400 mcg-20 mcg-300 mcg tablet [Concomitant]
  7. Mucinex DM 60 mg-1,200 mg tablet,extended release 12 hr [Concomitant]
  8. budesonide 180 mcg/actuation breath activated powder inhaler [Concomitant]
  9. tramadol 50 mg tablet [Concomitant]
  10. ATORVASTATIN 10 MG TAB [Concomitant]
  11. LOSARTAN POTASSIUM [Concomitant]
     Active Substance: LOSARTAN POTASSIUM
  12. Lasix 40 mg tablet [Concomitant]
  13. Toprol XL 25 mg tablet,extended release [Concomitant]
  14. valacyclovir 500 mg tablet [Concomitant]
  15. ELIQUIS [Concomitant]
     Active Substance: APIXABAN
  16. Spiriva with HandiHaler 18 mcg and inhalation capsules [Concomitant]
  17. CITALOPRAM HYDROCHLORIDE [Concomitant]
     Active Substance: CITALOPRAM HYDROCHLORIDE
  18. melatonin 10 mg capsule [Concomitant]
  19. Ocuvite 150 mg-30 unit-5 mg-150 mg capsule [Concomitant]

REACTIONS (1)
  - Death [None]

NARRATIVE: CASE EVENT DATE: 20231109
